FAERS Safety Report 5029316-5 (Version None)
Quarter: 2006Q2

REPORT INFORMATION
  Report Type: 
  Country: None (occurrence: None)
  Receive Date: 20060615
  Receipt Date: 20060615
  Transmission Date: 20061013
  Serious: Yes (Other)
  Sender: FDA-Public Use
  Company Number: None

PATIENT
  Age: 86 Year
  Sex: Female

DRUGS (1)
  1. DUONEB [Suspect]
     Indication: CHRONIC OBSTRUCTIVE PULMONARY DISEASE
     Dosage: 1 VIAL
     Dates: start: 20060529

REACTIONS (3)
  - ANXIETY [None]
  - SIMILAR REACTION ON PREVIOUS EXPOSURE TO DRUG [None]
  - SWELLING FACE [None]
